FAERS Safety Report 7203710-6 (Version None)
Quarter: 2010Q4

REPORT INFORMATION
  Report Type: 
  Country: None (occurrence: None)
  Receive Date: 20101230
  Receipt Date: 20101217
  Transmission Date: 20110411
  Serious: Yes (Hospitalization)
  Sender: FDA-Public Use
  Company Number: PHHY2010US86277

PATIENT
  Age: 84 Year
  Sex: Female

DRUGS (6)
  1. DIOVAN [Suspect]
     Dosage: 100 MG
  2. CALCIUM [Concomitant]
  3. VITAMIN D [Concomitant]
  4. PEPCID [Concomitant]
  5. LIBRIUM [Concomitant]
  6. METOPROLOL TARTRATE [Concomitant]

REACTIONS (6)
  - ASTHENIA [None]
  - DYSPNOEA [None]
  - HYPERTENSION [None]
  - HYPOTENSION [None]
  - NERVOUSNESS [None]
  - PALPITATIONS [None]
